FAERS Safety Report 24363206 (Version 1)
Quarter: 2024Q3

REPORT INFORMATION
  Report Type: Spontaneous
  Country: US (occurrence: None)
  Receive Date: 20240924
  Receipt Date: 20240924
  Transmission Date: 20241016
  Serious: No
  Sender: Public
  Company Number: None

PATIENT
  Age: 76 Year
  Sex: Female

DRUGS (1)
  1. XDEMVY [Suspect]
     Active Substance: LOTILANER
     Indication: Blepharitis
     Dosage: BID
     Dates: start: 20240904, end: 20240911

REACTIONS (2)
  - Pain in jaw [None]
  - Therapy cessation [None]

NARRATIVE: CASE EVENT DATE: 20240924
